FAERS Safety Report 7394745-1 (Version None)
Quarter: 2011Q2

REPORT INFORMATION
  Report Type: 
  Country: None (occurrence: None)
  Receive Date: 20110405
  Receipt Date: 20110330
  Transmission Date: 20111010
  Serious: Yes (Death)
  Sender: FDA-Public Use
  Company Number: TN-SANOFI-AVENTIS-2011SA019689

PATIENT
  Age: 72 Year
  Sex: Female

DRUGS (6)
  1. HYPOTEN [Concomitant]
     Route: 048
     Dates: end: 20110228
  2. INSULATARD [Concomitant]
     Route: 058
     Dates: end: 20110228
  3. PLAVIX [Suspect]
     Indication: CORONARY ARTERIAL STENT INSERTION
     Route: 048
     Dates: start: 20110220, end: 20110228
  4. TAHOR [Concomitant]
     Route: 048
     Dates: end: 20110228
  5. ASPIRIN [Concomitant]
     Route: 048
     Dates: end: 20110228
  6. PLAVIX [Suspect]
     Indication: ACUTE CORONARY SYNDROME
     Route: 048
     Dates: start: 20110220, end: 20110228

REACTIONS (2)
  - DIABETES MELLITUS [None]
  - RENAL FAILURE ACUTE [None]
